FAERS Safety Report 12604803 (Version 6)
Quarter: 2017Q1

REPORT INFORMATION
  Report Type: Spontaneous
  Country: US (occurrence: US)
  Receive Date: 20160728
  Receipt Date: 20170222
  Transmission Date: 20170428
  Serious: Yes (Hospitalization)
  Sender: FDA-Public Use
  Company Number: US-ACTELION-A-US2016-139803

PATIENT
  Age: 62 Year
  Sex: Male

DRUGS (8)
  1. REVATIO [Concomitant]
     Active Substance: SILDENAFIL CITRATE
  2. TACROLIMUS. [Concomitant]
     Active Substance: TACROLIMUS
  3. ZOLOFT [Concomitant]
     Active Substance: SERTRALINE HYDROCHLORIDE
  4. DEPAKOTE [Concomitant]
     Active Substance: DIVALPROEX SODIUM
  5. TRACLEER [Suspect]
     Active Substance: BOSENTAN
     Indication: PORTOPULMONARY HYPERTENSION
     Dosage: 125 MG, BID
     Route: 048
     Dates: start: 20120726
  6. COUMADIN [Concomitant]
     Active Substance: WARFARIN SODIUM
  7. VELETRI [Suspect]
     Active Substance: EPOPROSTENOL
     Indication: PORTOPULMONARY HYPERTENSION
     Dosage: 10 NG/KG, PER MIN
     Route: 042
     Dates: start: 20110317
  8. MIDODRINE [Concomitant]
     Active Substance: MIDODRINE

REACTIONS (13)
  - Device related infection [Unknown]
  - Pyrexia [Recovered/Resolved]
  - Cold sweat [Unknown]
  - Chills [Recovered/Resolved]
  - Blood culture positive [Unknown]
  - Dialysis related complication [Unknown]
  - Rash generalised [Unknown]
  - Weight increased [Unknown]
  - Cellulitis [Unknown]
  - Sepsis [Recovered/Resolved]
  - Oxygen saturation decreased [Unknown]
  - Tachycardia [Recovered/Resolved]
  - Hypotension [Recovered/Resolved]

NARRATIVE: CASE EVENT DATE: 20160720
